FAERS Safety Report 10184310 (Version 1)
Quarter: 2014Q2

REPORT INFORMATION
  Report Type: Spontaneous
  Country: US (occurrence: US)
  Receive Date: 20140520
  Receipt Date: 20140520
  Transmission Date: 20141212
  Serious: Yes (Hospitalization, Other)
  Sender: FDA-Public Use
  Company Number: PHHY2014US057681

PATIENT
  Age: 17 Year
  Sex: Female

DRUGS (2)
  1. LEVETIRACETAM [Suspect]
     Indication: CONVULSION
  2. LEVETIRACETAM [Suspect]
     Indication: FATIGUE

REACTIONS (5)
  - Tubulointerstitial nephritis [Recovered/Resolved]
  - Flank pain [Unknown]
  - Leukocyturia [Recovered/Resolved]
  - Hydronephrosis [Unknown]
  - Dysuria [Recovered/Resolved]
